FAERS Safety Report 11950179 (Version 1)
Quarter: 2016Q1

REPORT INFORMATION
  Report Type: Spontaneous
  Country: US (occurrence: US)
  Receive Date: 20160126
  Receipt Date: 20160126
  Transmission Date: 20160526
  Serious: No
  Sender: FDA-Public Use
  Company Number: US-SHIRE-US201600541

PATIENT
  Age: 12 Year
  Sex: Male

DRUGS (1)
  1. VYVANSE [Suspect]
     Active Substance: LISDEXAMFETAMINE DIMESYLATE
     Indication: ATTENTION DEFICIT/HYPERACTIVITY DISORDER
     Dosage: 30 MG, UNKNOWN
     Route: 048

REACTIONS (4)
  - Ear congestion [Not Recovered/Not Resolved]
  - Ear infection [Not Recovered/Not Resolved]
  - Nasal congestion [Not Recovered/Not Resolved]
  - Hypoacusis [Not Recovered/Not Resolved]

NARRATIVE: CASE EVENT DATE: 20160109
